FAERS Safety Report 22633746 (Version 1)
Quarter: 2023Q2

REPORT INFORMATION
  Report Type: Spontaneous
  Country: AU (occurrence: AU)
  Receive Date: 20230623
  Receipt Date: 20230623
  Transmission Date: 20230722
  Serious: Yes (Life-Threatening, Hospitalization)
  Sender: FDA-Public Use
  Company Number: AU-PFIZER INC-PV202300108826

PATIENT
  Age: 58 Year
  Sex: Female

DRUGS (3)
  1. CISPLATIN [Suspect]
     Active Substance: CISPLATIN
     Indication: Breast cancer recurrent
     Dosage: UNK UNK, CYCLIC
  2. FLUOROURACIL [Suspect]
     Active Substance: FLUOROURACIL
     Indication: Breast cancer recurrent
     Dosage: UNK UNK, CYCLIC, INFUSIONAL
  3. ADRIAMYCIN [Suspect]
     Active Substance: DOXORUBICIN HYDROCHLORIDE
     Indication: Breast cancer recurrent
     Dosage: UNK UNK, CYCLIC

REACTIONS (1)
  - Neutropenic colitis [Recovered/Resolved]
